FAERS Safety Report 5857468-3 (Version None)
Quarter: 2008Q3

REPORT INFORMATION
  Report Type: 
  Country: None (occurrence: None)
  Receive Date: 20080826
  Receipt Date: 20080820
  Transmission Date: 20090109
  Serious: Yes (Other)
  Sender: FDA-Public Use
  Company Number: BR-BAYER-200817279LA

PATIENT
  Age: 30 Year
  Sex: Female
  Weight: 51 kg

DRUGS (1)
  1. MIRANOVA [Suspect]
     Indication: ORAL CONTRACEPTION
     Route: 048
     Dates: start: 20080813

REACTIONS (1)
  - RECTAL HAEMORRHAGE [None]
